FAERS Safety Report 6945949-0 (Version None)
Quarter: 2010Q3

REPORT INFORMATION
  Report Type: 
  Country: None (occurrence: None)
  Receive Date: 20100827
  Receipt Date: 20100128
  Transmission Date: 20110219
  Serious: Yes (Other)
  Sender: FDA-Public Use
  Company Number: 2010SP005991

PATIENT
  Age: 52 Year
  Sex: Female

DRUGS (3)
  1. ESTRADIOL [Suspect]
     Indication: PRODUCT USED FOR UNKNOWN INDICATION
     Dosage: 100 MG
     Dates: start: 20070228
  2. TAMOXIFEN CITRATE [Concomitant]
  3. FLUOXETINE [Concomitant]

REACTIONS (2)
  - BLOOD OESTROGEN INCREASED [None]
  - BREAST CANCER FEMALE [None]
